FAERS Safety Report 13564543 (Version 1)
Quarter: 2017Q2

REPORT INFORMATION
  Report Type: Spontaneous
  Country: FR (occurrence: FR)
  Receive Date: 20170519
  Receipt Date: 20170519
  Transmission Date: 20170830
  Serious: Yes (Hospitalization)
  Sender: FDA-Public Use
  Company Number: FR-ASTRAZENECA-2017SE52854

PATIENT
  Age: 23155 Day
  Sex: Male

DRUGS (6)
  1. PREVISCAN [Concomitant]
     Active Substance: FLUINDIONE
     Dates: start: 20170428
  2. ASPIRINE [Concomitant]
     Active Substance: ASPIRIN
     Dates: end: 20170426
  3. DEBRIDAT [Suspect]
     Active Substance: TRIMEBUTINE MALEATE
     Indication: GASTROOESOPHAGEAL REFLUX DISEASE
     Route: 065
     Dates: start: 201703
  4. ASPIRINE [Concomitant]
     Active Substance: ASPIRIN
     Dates: start: 20170427
  5. INEXIUM [Suspect]
     Active Substance: ESOMEPRAZOLE
     Indication: GASTROOESOPHAGEAL REFLUX DISEASE
     Route: 048
     Dates: start: 201703
  6. PREVISCAN [Concomitant]
     Active Substance: FLUINDIONE
     Dates: end: 20170426

REACTIONS (3)
  - Gingival bleeding [Recovering/Resolving]
  - Thrombocytopenic purpura [Recovering/Resolving]
  - Epistaxis [Recovering/Resolving]

NARRATIVE: CASE EVENT DATE: 20170421
